FAERS Safety Report 7864864-1 (Version None)
Quarter: 2011Q4

REPORT INFORMATION
  Report Type: 
  Country: None (occurrence: None)
  Receive Date: 20111028
  Receipt Date: 20100907
  Transmission Date: 20120403
  Serious: No
  Sender: FDA-Public Use
  Company Number: US-GLAXOSMITHKLINE-A0879878A

PATIENT
  Sex: Female

DRUGS (6)
  1. ATROVENT [Concomitant]
  2. ADVAIR DISKUS 100/50 [Suspect]
     Indication: CHRONIC OBSTRUCTIVE PULMONARY DISEASE
     Dosage: 1PUFF TWICE PER DAY
     Route: 055
  3. FLONASE [Concomitant]
  4. SPIRIVA [Concomitant]
  5. OXYGEN [Concomitant]
  6. PROAIR HFA [Concomitant]

REACTIONS (2)
  - INCORRECT STORAGE OF DRUG [None]
  - DRUG INEFFECTIVE [None]
